FAERS Safety Report 20004016 (Version 1)
Quarter: 2021Q4

REPORT INFORMATION
  Report Type: Spontaneous
  Country: IT (occurrence: IT)
  Receive Date: 20211027
  Receipt Date: 20211027
  Transmission Date: 20220304
  Serious: Yes (Hospitalization)
  Sender: FDA-Public Use
  Company Number: None

PATIENT
  Age: 26 Year
  Sex: Male

DRUGS (1)
  1. IBUPROFEN [Suspect]
     Active Substance: IBUPROFEN
     Indication: Antiinflammatory therapy
     Dosage: 600 MILLIGRAM, QD
     Route: 048
     Dates: start: 20210626, end: 20210626

REACTIONS (3)
  - Drug hypersensitivity [Recovering/Resolving]
  - Eyelid oedema [Recovering/Resolving]
  - Scrotal swelling [Recovering/Resolving]

NARRATIVE: CASE EVENT DATE: 20210626
